FAERS Safety Report 7981204-8 (Version None)
Quarter: 2011Q4

REPORT INFORMATION
  Report Type: 
  Country: None (occurrence: None)
  Receive Date: 20111212
  Receipt Date: 20111128
  Transmission Date: 20120403
  Serious: Yes (Hospitalization)
  Sender: FDA-Public Use
  Company Number: 1000025993

PATIENT
  Age: 48 Year
  Sex: Female

DRUGS (1)
  1. ESCITALOPRAM OXALATE [Suspect]
     Indication: DEPRESSION
     Dates: start: 20110801, end: 20110806

REACTIONS (11)
  - BLOOD PRESSURE DECREASED [None]
  - URTICARIA [None]
  - RASH PUSTULAR [None]
  - VISION BLURRED [None]
  - PHARYNGEAL OEDEMA [None]
  - MALAISE [None]
  - NAUSEA [None]
  - ECZEMA [None]
  - FEELING HOT [None]
  - HYPERSENSITIVITY [None]
  - PRESYNCOPE [None]
